FAERS Safety Report 25669297 (Version 1)
Quarter: 2025Q3

REPORT INFORMATION
  Report Type: Spontaneous
  Country: US (occurrence: US)
  Receive Date: 20250812
  Receipt Date: 20250812
  Transmission Date: 20251020
  Serious: Yes (Other)
  Sender: UCB
  Company Number: US-UCBSA-2025048766

PATIENT
  Sex: Male

DRUGS (1)
  1. BIMZELX [Suspect]
     Active Substance: BIMEKIZUMAB-BKZX
     Indication: Product used for unknown indication
     Dates: start: 202503, end: 202504

REACTIONS (6)
  - Gastrointestinal fungal infection [Unknown]
  - Injection site pain [Unknown]
  - Ear discomfort [Not Recovered/Not Resolved]
  - Cystitis [Unknown]
  - Emotional disorder [Unknown]
  - Fungal pharyngitis [Unknown]

NARRATIVE: CASE EVENT DATE: 20250101
